FAERS Safety Report 7723779-X (Version None)
Quarter: 2011Q3

REPORT INFORMATION
  Report Type: 
  Country: None (occurrence: None)
  Receive Date: 20110901
  Receipt Date: 20110818
  Transmission Date: 20111222
  Serious: Yes (Other)
  Sender: FDA-Public Use
  Company Number: PHHY2011BR74441

PATIENT
  Age: 39 Year
  Sex: Male

DRUGS (1)
  1. EXFORGE [Suspect]
     Indication: HYPERTENSION
     Dosage: (VALS 160 MG, AMLO 05 MG) 1 DF, A DAY

REACTIONS (1)
  - ASTHMA [None]
